FAERS Safety Report 7532264-X (Version None)
Quarter: 2011Q2

REPORT INFORMATION
  Report Type: 
  Country: None (occurrence: None)
  Receive Date: 20110608
  Receipt Date: 20110603
  Transmission Date: 20111010
  Serious: Yes (Death, Hospitalization)
  Sender: FDA-Public Use
  Company Number: PHHY2011JP48697

PATIENT
  Age: 75 Year
  Sex: Male

DRUGS (5)
  1. PREDNISOLONE [Suspect]
     Dosage: 20 MG/DAY
  2. SULFAMETHOXAZOLE AND TRIMETHOPRIM [Suspect]
     Dosage: UNK UKN, UNK
  3. PREDNISOLONE [Suspect]
     Dosage: 1 G/DAY FOR THREE DAYS
  4. PREDNISOLONE [Suspect]
     Dosage: 5 MG/DAY EVERY TWO WEEKS
  5. METHYLPREDNISOLONE [Suspect]
     Indication: INTERSTITIAL LUNG DISEASE
     Dosage: 40 MG/DAY FOR TWO WEEKS

REACTIONS (12)
  - RESPIRATORY FAILURE [None]
  - RALES [None]
  - BACTERIAL INFECTION [None]
  - DYSPNOEA [None]
  - SEPSIS [None]
  - HYPOALBUMINAEMIA [None]
  - HEPATIC FUNCTION ABNORMAL [None]
  - MYCOBACTERIUM ABSCESSUS INFECTION [None]
  - PYREXIA [None]
  - RENAL IMPAIRMENT [None]
  - HYPOXIA [None]
  - ANAEMIA [None]
